FAERS Safety Report 19810655 (Version 1)
Quarter: 2021Q3

REPORT INFORMATION
  Report Type: Spontaneous
  Country: CA (occurrence: CA)
  Receive Date: 20210909
  Receipt Date: 20210909
  Transmission Date: 20211014
  Serious: Yes (Other)
  Sender: FDA-Public Use
  Company Number: CA-TEVA-2021-CA-1948855

PATIENT
  Age: 68 Year
  Sex: Female
  Weight: 77 kg

DRUGS (13)
  1. JANUMET [Concomitant]
     Active Substance: METFORMIN HYDROCHLORIDE\SITAGLIPTIN PHOSPHATE
  2. PANTOPRAZOLEMAGNESIUM [Concomitant]
  3. TYLENOL [Concomitant]
     Active Substance: ACETAMINOPHEN
  4. INSULIN [Concomitant]
     Active Substance: INSULIN NOS
  5. UPTRAVI [Concomitant]
     Active Substance: SELEXIPAG
     Dosage: 1600 MICROGRAM DAILY;
  6. SILDENAFIL CITRATE. [Suspect]
     Active Substance: SILDENAFIL CITRATE
     Indication: PULMONARY ARTERIAL HYPERTENSION
     Dosage: 60 MILLIGRAM DAILY;
     Route: 048
  7. ROSUVASTATIN CALCIUM. [Concomitant]
     Active Substance: ROSUVASTATIN CALCIUM
  8. OPSUMIT [Concomitant]
     Active Substance: MACITENTAN
  9. TEMAZEPAM. [Concomitant]
     Active Substance: TEMAZEPAM
  10. WARFARIN [Concomitant]
     Active Substance: WARFARIN
  11. FUROSEMIDE. [Concomitant]
     Active Substance: FUROSEMIDE
  12. GLICLAZIDE [Concomitant]
     Active Substance: GLICLAZIDE
  13. METOPROLOL. [Concomitant]
     Active Substance: METOPROLOL

REACTIONS (8)
  - Weight increased [Not Recovered/Not Resolved]
  - Dizziness [Not Recovered/Not Resolved]
  - Pain in jaw [Not Recovered/Not Resolved]
  - Sinusitis [Not Recovered/Not Resolved]
  - Headache [Not Recovered/Not Resolved]
  - Neck pain [Not Recovered/Not Resolved]
  - Ear pain [Not Recovered/Not Resolved]
  - Myalgia [Not Recovered/Not Resolved]
